FAERS Safety Report 8061165-6 (Version None)
Quarter: 2012Q1

REPORT INFORMATION
  Report Type: 
  Country: None (occurrence: None)
  Receive Date: 20120120
  Receipt Date: 20110630
  Transmission Date: 20120608
  Serious: No
  Sender: FDA-Public Use
  Company Number: US-ALLERGAN-1108877US

PATIENT
  Age: 56 Year
  Sex: Female

DRUGS (2)
  1. SYSTANE LUBRICATING DROP [Concomitant]
     Indication: DRY EYE
     Dosage: UNK
     Route: 047
  2. RESTASIS [Suspect]
     Indication: DRY EYE
     Dosage: 1 GTT, BID
     Route: 047
     Dates: start: 20110627

REACTIONS (4)
  - WRONG TECHNIQUE IN DRUG USAGE PROCESS [None]
  - ABNORMAL SENSATION IN EYE [None]
  - EYE IRRITATION [None]
  - ASTHENOPIA [None]
